FAERS Safety Report 20319482 (Version 1)
Quarter: 2022Q1

REPORT INFORMATION
  Report Type: Spontaneous
  Country: CN (occurrence: CN)
  Receive Date: 20220110
  Receipt Date: 20220110
  Transmission Date: 20220423
  Serious: Yes (Other)
  Sender: FDA-Public Use
  Company Number: CN-GRUNENTHAL-2022-100104

PATIENT
  Age: 95 Year
  Sex: Female

DRUGS (1)
  1. TRAMADOL HYDROCHLORIDE [Suspect]
     Active Substance: TRAMADOL HYDROCHLORIDE
     Indication: Abdominal pain
     Dosage: 0.1 GRAM, 1/DAY
     Route: 030
     Dates: start: 20211219, end: 20211219

REACTIONS (4)
  - Altered state of consciousness [Recovered/Resolved]
  - Heart rate increased [Recovering/Resolving]
  - Oxygen saturation decreased [Recovered/Resolved]
  - Blood pressure increased [Not Recovered/Not Resolved]

NARRATIVE: CASE EVENT DATE: 20211219
